FAERS Safety Report 5262012-8 (Version None)
Quarter: 2007Q1

REPORT INFORMATION
  Report Type: 
  Country: None (occurrence: None)
  Receive Date: 20061208
  Receipt Date: 20060807
  Transmission Date: 20070707
  Serious: Yes (Hospitalization, Other)
  Sender: FDA-Public Use
  Company Number: USA-2006-0024834

PATIENT
  Age: 29 Year
  Sex: Female
  Weight: 70.7 kg

DRUGS (2)
  1. OXYCONTIN [Suspect]
     Indication: INTERVERTEBRAL DISC DEGENERATION
     Dosage: UNK MG, Q12H
     Dates: start: 20050808
  2. COCAINE (COCAINE) [Suspect]
     Indication: DRUG ABUSER

REACTIONS (2)
  - OVERDOSE [None]
  - SUBSTANCE ABUSE [None]
